FAERS Safety Report 21635506 (Version 1)
Quarter: 2022Q4

REPORT INFORMATION
  Report Type: Spontaneous
  Country: US (occurrence: US)
  Receive Date: 20221123
  Receipt Date: 20221123
  Transmission Date: 20230113
  Serious: No
  Sender: FDA-Public Use
  Company Number: US-NOVOPROD-950420

PATIENT
  Sex: Female

DRUGS (3)
  1. NOVOLOG [Suspect]
     Active Substance: INSULIN ASPART
     Dosage: 15 UNITS
     Route: 058
     Dates: start: 2019
  2. NOVOLOG [Suspect]
     Active Substance: INSULIN ASPART
     Indication: Type 2 diabetes mellitus
     Dosage: 15 UNITS
     Route: 058
     Dates: start: 2019
  3. NOVOLOG [Suspect]
     Active Substance: INSULIN ASPART
     Dosage: 15 UNITS
     Route: 058
     Dates: start: 2019

REACTIONS (3)
  - Arthralgia [Recovered/Resolved]
  - Tremor [Recovered/Resolved]
  - Hypersensitivity [Recovered/Resolved]
